FAERS Safety Report 19495168 (Version 1)
Quarter: 2021Q3

REPORT INFORMATION
  Report Type: Spontaneous
  Country: DE (occurrence: DE)
  Receive Date: 20210706
  Receipt Date: 20210706
  Transmission Date: 20211014
  Serious: Yes (Hospitalization)
  Sender: FDA-Public Use
  Company Number: DE-TEVA-2021-DE-1928318

PATIENT
  Age: 82 Year
  Sex: Female

DRUGS (14)
  1. DULAGLUTIDE. [Concomitant]
     Active Substance: DULAGLUTIDE
     Dosage: SOLUTION FOR INJECTION / INFUSION
     Route: 058
  2. DIGITOXIN [Concomitant]
     Active Substance: DIGITOXIN
     Dosage: .07 MILLIGRAM DAILY; 1?0?0?0
     Route: 048
  3. INSULIN LISPRO [Concomitant]
     Active Substance: INSULIN LISPRO
     Dosage: 45?30?35?0, SOLUTION FOR INJECTION / INFUSION
     Route: 058
  4. PREGABALIN. [Suspect]
     Active Substance: PREGABALIN
     Dosage: 75 MILLIGRAM DAILY; 0?0?1?0
     Route: 048
  5. SERTRALIN [Suspect]
     Active Substance: SERTRALINE HYDROCHLORIDE
     Dosage: 50 MILLIGRAM DAILY; 1?0?0?0
     Route: 048
  6. KALIUMCITRAT [Concomitant]
     Active Substance: POTASSIUM CITRATE
     Dosage: 6 DOSAGE FORMS DAILY; 2?2?2?0
     Route: 048
  7. BISOPROLOL [Concomitant]
     Active Substance: BISOPROLOL
     Dosage: 5 MILLIGRAM DAILY; 1?0?0?0
     Route: 048
  8. ATORVASTATIN [Concomitant]
     Active Substance: ATORVASTATIN
     Dosage: 20 MILLIGRAM DAILY; 0?0?1?0,
     Route: 048
  9. PANTOPRAZOL [Concomitant]
     Active Substance: PANTOPRAZOLE SODIUM
     Dosage: 40 MILLIGRAM DAILY; 1?0?0?0
     Route: 048
  10. BECLOMETASON/FORMOTEROL [Concomitant]
     Dosage: 1 DOSAGE FORMS DAILY; 6 | 100 MCG, 1?0?0?0, METERED DOSE INHALER
     Route: 055
  11. PHENPROCOUMON [Concomitant]
     Active Substance: PHENPROCOUMON
     Dosage: ACCORDING TO INR
     Route: 048
  12. TORASEMID [Suspect]
     Active Substance: TORSEMIDE
     Dosage: 20 MG, 1?0.5?0?0
     Route: 048
  13. INSULIN DETEMIR [Concomitant]
     Active Substance: INSULIN DETEMIR
     Dosage: 0?0?0?48, SOLUTION FOR INJECTION / INFUSION, 1 DF
     Route: 058
  14. SITAGLIPTIN [Concomitant]
     Active Substance: SITAGLIPTIN
     Dosage: 50 MILLIGRAM DAILY; 1?0?0?0
     Route: 048

REACTIONS (2)
  - Pain [Unknown]
  - Fall [Unknown]
